FAERS Safety Report 6785819-4 (Version None)
Quarter: 2010Q2

REPORT INFORMATION
  Report Type: 
  Country: None (occurrence: None)
  Receive Date: 20100621
  Receipt Date: 20100621
  Transmission Date: 20101027
  Serious: Yes (Hospitalization, Disabling, Other)
  Sender: FDA-Public Use
  Company Number: None

PATIENT
  Age: 60 Year
  Sex: Female
  Weight: 70.3075 kg

DRUGS (1)
  1. NEUTROGENA SUNSCREEN [Suspect]
     Indication: PROPHYLAXIS AGAINST SOLAR RADIATION
     Dosage: SPRAYED ONCE ON BOTH LEGS ONCE
     Dates: start: 20100603

REACTIONS (2)
  - CAUSTIC INJURY [None]
  - ERYTHEMA [None]
